FAERS Safety Report 4563884-2 (Version None)
Quarter: 2005Q1

REPORT INFORMATION
  Report Type: 
  Country: None (occurrence: None)
  Receive Date: 20050128
  Receipt Date: 20050124
  Transmission Date: 20050727
  Serious: Yes (Other)
  Sender: FDA-Public Use
  Company Number: PHNR2005AU00488

PATIENT
  Age: 6 Year
  Sex: Female

DRUGS (2)
  1. TACROLIMUS [Suspect]
  2. NEORAL [Suspect]
     Indication: LIVER TRANSPLANT
     Route: 048

REACTIONS (7)
  - GINGIVAL HYPERPLASIA [None]
  - GINGIVECTOMY [None]
  - HIRSUTISM [None]
  - MENTAL DISORDER [None]
  - NEUROTOXICITY [None]
  - PSYCHOTIC DISORDER [None]
  - SUICIDAL IDEATION [None]
